FAERS Safety Report 19584282 (Version 1)
Quarter: 2021Q3

REPORT INFORMATION
  Report Type: Spontaneous
  Country: US (occurrence: US)
  Receive Date: 20210720
  Receipt Date: 20210720
  Transmission Date: 20211014
  Serious: No
  Sender: FDA-Public Use
  Company Number: US-BEH-2021134111

PATIENT
  Age: 68 Year
  Sex: Female

DRUGS (2)
  1. HAEGARDA [Suspect]
     Active Substance: HUMAN C1-ESTERASE INHIBITOR
     Indication: HEREDITARY ANGIOEDEMA
     Dosage: 6000 UNITS, EVERY 3 TO 4 DAYS
     Route: 058
     Dates: start: 201711
  2. FIRAZYR [Concomitant]
     Active Substance: ICATIBANT ACETATE

REACTIONS (3)
  - Lethargy [Unknown]
  - Pain [Unknown]
  - Feeling abnormal [Unknown]

NARRATIVE: CASE EVENT DATE: 20210715
